FAERS Safety Report 5443353-8 (Version None)
Quarter: 2007Q3

REPORT INFORMATION
  Report Type: 
  Country: None (occurrence: None)
  Receive Date: 20070905
  Receipt Date: 20070829
  Transmission Date: 20080115
  Serious: Yes (Hospitalization)
  Sender: FDA-Public Use
  Company Number: A0663491A

PATIENT
  Age: 55 Year
  Sex: Male

DRUGS (16)
  1. PAZOPANIB [Suspect]
     Indication: MALIGNANT GLIOMA
     Dosage: 400MG PER DAY
     Route: 048
     Dates: start: 20070516
  2. LAPATINIB [Suspect]
     Indication: MALIGNANT GLIOMA
     Dosage: 250MG PER DAY
     Route: 048
     Dates: start: 20070516
  3. PHENYTEK [Concomitant]
     Dosage: 200MG TWICE PER DAY
     Route: 048
     Dates: start: 20070101
  4. DECADRON [Concomitant]
     Dosage: 2MG PER DAY
     Route: 048
     Dates: start: 20070101
  5. SYNTHROID [Concomitant]
     Indication: HYPOTHYROIDISM
     Dosage: .075MCG PER DAY
     Route: 048
     Dates: start: 20070101
  6. AVODART [Concomitant]
     Dosage: .5MG PER DAY
     Route: 048
     Dates: start: 20070101
  7. DEXAMETHASONE 0.5MG TAB [Concomitant]
  8. KEPPRA [Concomitant]
     Dosage: 250U TWICE PER DAY
     Dates: start: 20070515
  9. VITAMIN CAP [Concomitant]
  10. ZANTAC 150 [Concomitant]
  11. ZOCOR [Concomitant]
  12. ECOTRIN [Concomitant]
     Dates: end: 20070410
  13. OMEGA 3 [Concomitant]
     Indication: NUTRITIONAL SUPPORT
  14. NEURONTIN [Concomitant]
     Dates: start: 20070705
  15. LISINOPRIL [Concomitant]
     Indication: HYPERTENSION
  16. LASIX [Concomitant]

REACTIONS (9)
  - ABDOMINAL PAIN [None]
  - CHROMATURIA [None]
  - CONSTIPATION [None]
  - DYSURIA [None]
  - FAECES DISCOLOURED [None]
  - HAEMATOCHEZIA [None]
  - PANCREATITIS [None]
  - PLEURAL EFFUSION [None]
  - POLLAKIURIA [None]
